FAERS Safety Report 24048865 (Version 1)
Quarter: 2024Q3

REPORT INFORMATION
  Report Type: Spontaneous
  Country: BE (occurrence: BE)
  Receive Date: 20240704
  Receipt Date: 20240704
  Transmission Date: 20241016
  Serious: Yes (Hospitalization)
  Sender: CELLTRION
  Company Number: BE-CELLTRION INC.-2024BE015726

PATIENT

DRUGS (1)
  1. TRUXIMA [Suspect]
     Active Substance: RITUXIMAB-ABBS
     Indication: Chemotherapy
     Dosage: ON 04/05/2022 PATIENT GOT 90 MG TRUXIMA. ON 20/05/2022 PATIENT GOT 300 MG TRUXIMA FROM THE 1000 MG
     Route: 042
     Dates: start: 20220504, end: 20220520

REACTIONS (3)
  - Malaise [Recovered/Resolved]
  - Chest pain [Recovered/Resolved]
  - Rash [Recovered/Resolved]

NARRATIVE: CASE EVENT DATE: 20220504
